FAERS Safety Report 22976076 (Version 2)
Quarter: 2023Q4

REPORT INFORMATION
  Report Type: Spontaneous
  Country: US (occurrence: None)
  Receive Date: 20230925
  Receipt Date: 20231019
  Transmission Date: 20240110
  Serious: No
  Sender: FDA-Public Use
  Company Number: 2023A215877

PATIENT
  Age: 21314 Day
  Sex: Female

DRUGS (1)
  1. BYDUREON BCISE [Suspect]
     Active Substance: EXENATIDE

REACTIONS (3)
  - Confusional state [Unknown]
  - Drug dose omission by device [Unknown]
  - Device leakage [Unknown]

NARRATIVE: CASE EVENT DATE: 20230921
